FAERS Safety Report 9258633 (Version 1)
Quarter: 2013Q1

REPORT INFORMATION
  Report Type: Spontaneous
  Country: US (occurrence: None)
  Receive Date: 20121212
  Receipt Date: 20121212
  Transmission Date: 20140127
  Serious: No
  Sender: FDA-Public Use
  Company Number: 1211USA005713

PATIENT
  Age: 54 Year
  Sex: Male
  Weight: 81.6 kg

DRUGS (4)
  1. VICTRELIS [Suspect]
     Dosage: 800 MG (4 CAPSULES), TID EVERY 7-9 HOURS WITH FOOD (BEGIN AT WEEK 5), ORAL
     Route: 048
  2. PEGASYS [Suspect]
  3. RIBAVIRIN [Suspect]
  4. ZOLPIDEM TARTRATE [Concomitant]

REACTIONS (8)
  - Adverse event [None]
  - Diverticulitis [None]
  - Platelet count decreased [None]
  - Anaemia [None]
  - Fatigue [None]
  - Dizziness [None]
  - Paraesthesia [None]
  - Weight decreased [None]
